FAERS Safety Report 11286334 (Version 1)
Quarter: 2015Q3

REPORT INFORMATION
  Report Type: Spontaneous
  Country: US (occurrence: US)
  Receive Date: 20150721
  Receipt Date: 20150721
  Transmission Date: 20151125
  Serious: No
  Sender: FDA-Public Use
  Company Number: US-UNITED THERAPEUTICS-UNT-2015-003999

PATIENT
  Age: 81 Year
  Sex: Female
  Weight: 80.73 kg

DRUGS (7)
  1. ORENITRAM [Suspect]
     Active Substance: TREPROSTINIL
     Indication: PULMONARY ARTERIAL HYPERTENSION
     Dosage: 0.625 MG, BID
     Route: 048
     Dates: start: 20150204
  2. ORENITRAM [Suspect]
     Active Substance: TREPROSTINIL
     Dosage: 0.625 MG, BID
     Route: 048
     Dates: start: 20150204
  3. ORENITRAM [Suspect]
     Active Substance: TREPROSTINIL
     Dosage: 2 TAB, BID
     Route: 048
     Dates: start: 20150317
  4. ORENITRAM [Suspect]
     Active Substance: TREPROSTINIL
     Dosage: 0.125 MG, Q12H
     Route: 048
     Dates: start: 20150318
  5. ORENITRAM [Suspect]
     Active Substance: TREPROSTINIL
     Dosage: 0.5 MG, Q12H
     Route: 048
  6. OPSUMIT [Suspect]
     Active Substance: MACITENTAN
     Indication: PRODUCT USED FOR UNKNOWN INDICATION
     Dosage: UNK
  7. ORENITRAM [Suspect]
     Active Substance: TREPROSTINIL
     Dosage: 0.50 MG,BID
     Route: 048
     Dates: start: 20150317

REACTIONS (5)
  - Contusion [Unknown]
  - Nausea [Not Recovered/Not Resolved]
  - Fluid retention [Recovering/Resolving]
  - Decreased appetite [Recovering/Resolving]
  - Dizziness [Unknown]

NARRATIVE: CASE EVENT DATE: 20150403
